FAERS Safety Report 6662909-8 (Version None)
Quarter: 2010Q2

REPORT INFORMATION
  Report Type: 
  Country: None (occurrence: None)
  Receive Date: 20100401
  Receipt Date: 20100323
  Transmission Date: 20101027
  Serious: Yes (Hospitalization)
  Sender: FDA-Public Use
  Company Number: ES-JNJFOC-20100306827

PATIENT
  Age: 69 Year
  Sex: Female

DRUGS (6)
  1. RISPERDAL [Suspect]
     Indication: SCHIZOAFFECTIVE DISORDER
     Route: 048
  2. LITHIUM CARBONATE [Interacting]
     Indication: SCHIZOAFFECTIVE DISORDER
     Route: 048
  3. LEVOTHROID [Concomitant]
     Indication: HYPOTHYROIDISM
     Route: 048
  4. METFORMIN HCL [Concomitant]
     Indication: TYPE 2 DIABETES MELLITUS
     Route: 048
  5. ENALAPRIL MALEATE [Concomitant]
     Route: 048
  6. TRAZODONE [Concomitant]
     Route: 065

REACTIONS (3)
  - DEPRESSED LEVEL OF CONSCIOUSNESS [None]
  - DRUG INTERACTION [None]
  - THERAPEUTIC AGENT TOXICITY [None]
